FAERS Safety Report 4462019-4 (Version None)
Quarter: 2004Q3

REPORT INFORMATION
  Report Type: 
  Country: None (occurrence: None)
  Receive Date: 20040924
  Receipt Date: 20040924
  Transmission Date: 20050211
  Serious: No
  Sender: FDA-Public Use
  Company Number: None

PATIENT
  Sex: Female

DRUGS (1)
  1. ATARAX [Suspect]
     Dosage: 25 MG PO
     Route: 048

REACTIONS (1)
  - MUSCLE SPASMS [None]
